FAERS Safety Report 9448426 (Version 2)
Quarter: 2013Q3

REPORT INFORMATION
  Report Type: Spontaneous
  Country: GB (occurrence: GB)
  Receive Date: 20130808
  Receipt Date: 20130809
  Transmission Date: 20140515
  Serious: Yes (Hospitalization)
  Sender: FDA-Public Use
  Company Number: GB-JNJFOC-20130800852

PATIENT
  Age: 32 Year
  Sex: Female
  Weight: 78 kg

DRUGS (6)
  1. SIMPONI [Suspect]
     Indication: PSORIATIC ARTHROPATHY
     Dosage: GIVEN ONCE ONLY STARTED THREE DAYS BEFORE ONSET OF SYMPTOMS
     Route: 058
     Dates: start: 201207
  2. METHOTREXATE [Concomitant]
     Indication: PSORIATIC ARTHROPATHY
     Dosage: STARTED SINCE YEARS
     Route: 058
  3. FOLIC ACID [Concomitant]
     Route: 065
  4. STEMETIL [Concomitant]
     Route: 065
  5. CO DYDRAMOL [Concomitant]
     Route: 065
  6. DEPO PROVERA [Concomitant]
     Route: 065

REACTIONS (5)
  - Diarrhoea [Recovered/Resolved]
  - Vomiting [Recovered/Resolved]
  - Abdominal pain [Recovered/Resolved]
  - Rectal haemorrhage [Recovered/Resolved]
  - Constipation [Recovered/Resolved]
